FAERS Safety Report 9391262 (Version 2)
Quarter: 2013Q3

REPORT INFORMATION
  Report Type: Report from Study
  Country: US (occurrence: US)
  Receive Date: 20130709
  Receipt Date: 20130716
  Transmission Date: 20140515
  Serious: Yes (Hospitalization)
  Sender: FDA-Public Use
  Company Number: US-ACTELION-A-NJ2013-85588

PATIENT
  Age: 75 Year
  Sex: Male

DRUGS (3)
  1. VENTAVIS [Suspect]
     Indication: PULMONARY ARTERIAL HYPERTENSION
     Dosage: 4-6 TIMES A DAY
     Route: 055
  2. COUMADIN [Concomitant]
  3. ADCIRCA [Concomitant]

REACTIONS (1)
  - Hernia obstructive [Recovering/Resolving]
